FAERS Safety Report 13504037 (Version 1)
Quarter: 2017Q2

REPORT INFORMATION
  Report Type: Spontaneous
  Country: US (occurrence: US)
  Receive Date: 20170502
  Receipt Date: 20170502
  Transmission Date: 20170830
  Serious: No
  Sender: FDA-Public Use
  Company Number: None

PATIENT
  Age: 44 Year
  Sex: Female
  Weight: 72 kg

DRUGS (4)
  1. ARIIX VINALI [Concomitant]
  2. ARIIX SLENDERIZ [Concomitant]
  3. ARRIX OPTIMALS [Concomitant]
  4. ZOLOFT [Suspect]
     Active Substance: SERTRALINE HYDROCHLORIDE
     Indication: ANXIETY
     Dosage: ?          QUANTITY:1 TABLET(S);?
     Route: 048
     Dates: start: 20120706, end: 20170228

REACTIONS (5)
  - Sexual dysfunction [None]
  - Orgasmic sensation decreased [None]
  - Paraesthesia [None]
  - Libido disorder [None]
  - Product quality issue [None]

NARRATIVE: CASE EVENT DATE: 20170502
